FAERS Safety Report 9400233 (Version 1)
Quarter: 2013Q3

REPORT INFORMATION
  Report Type: Spontaneous
  Country: DE (occurrence: DE)
  Receive Date: 20130715
  Receipt Date: 20130715
  Transmission Date: 20140515
  Serious: Yes (Other)
  Sender: FDA-Public Use
  Company Number: DE-BRISTOL-MYERS SQUIBB COMPANY-19092188

PATIENT
  Age: 42 Year
  Sex: Male

DRUGS (1)
  1. ABILIFY TABS 10 MG [Suspect]

REACTIONS (1)
  - Congestive cardiomyopathy [Recovering/Resolving]
